FAERS Safety Report 18440323 (Version 1)
Quarter: 2020Q4

REPORT INFORMATION
  Report Type: Spontaneous
  Country: US (occurrence: PR)
  Receive Date: 20201029
  Receipt Date: 20201029
  Transmission Date: 20210114
  Serious: No
  Sender: FDA-Public Use
  Company Number: US-ASTRAZENECA-2020SF38251

PATIENT
  Age: 2873 Week
  Sex: Male
  Weight: 93 kg

DRUGS (4)
  1. BYDUREON BCISE [Suspect]
     Active Substance: EXENATIDE
     Indication: TYPE 2 DIABETES MELLITUS
     Route: 065
  2. ROSUVASTATIN. [Suspect]
     Active Substance: ROSUVASTATIN
     Route: 048
  3. JLIMEPIRIDE [Concomitant]
     Route: 065
  4. SEGLUROMET [Concomitant]
     Active Substance: ERTUGLIFLOZIN PIDOLATE\METFORMIN HYDROCHLORIDE
     Route: 065

REACTIONS (6)
  - Injection site inflammation [Unknown]
  - Injection site pain [Unknown]
  - Injection site oedema [Unknown]
  - Injection site reaction [Unknown]
  - Injection site discolouration [Unknown]
  - Back pain [Unknown]

NARRATIVE: CASE EVENT DATE: 20201019
